FAERS Safety Report 5718361-X (Version None)
Quarter: 2008Q2

REPORT INFORMATION
  Report Type: 
  Country: None (occurrence: None)
  Receive Date: 20080425
  Receipt Date: 20080123
  Transmission Date: 20081010
  Serious: No
  Sender: FDA-Public Use
  Company Number: A0698618A

PATIENT
  Age: 63 Year
  Sex: Female

DRUGS (3)
  1. DEXEDRINE [Suspect]
     Indication: NARCOLEPSY
     Dosage: 5MG TWICE PER DAY
     Route: 048
     Dates: start: 19790112, end: 20021212
  2. NORVASC [Concomitant]
  3. HORMONE [Concomitant]

REACTIONS (1)
  - DRUG INEFFECTIVE [None]
